FAERS Safety Report 8496864-5 (Version None)
Quarter: 2012Q3

REPORT INFORMATION
  Report Type: 
  Country: None (occurrence: None)
  Receive Date: 20120709
  Receipt Date: 20120626
  Transmission Date: 20120928
  Serious: Yes (Hospitalization, Other)
  Sender: FDA-Public Use
  Company Number: US-ELI_LILLY_AND_COMPANY-US201106001399

PATIENT
  Sex: Male

DRUGS (33)
  1. FORTEO [Suspect]
     Dosage: 20 UG, QD
     Dates: start: 20120330
  2. AMLODIPINE BESYLATE [Concomitant]
     Indication: BLOOD PRESSURE
     Dosage: 5 MG, QD
  3. COLACE [Concomitant]
     Dosage: 100 MG, UNK
  4. FERROUS SULFATE TAB [Concomitant]
     Dosage: 65 MG, UNK
  5. SIMVASTATIN [Concomitant]
     Dosage: 40 MG, QD
  6. CHRONULAC [Concomitant]
     Indication: CONSTIPATION
     Dosage: UNK UNK, BID
  7. LEVOTHYROXINE SODIUM [Concomitant]
     Dosage: 0.125 MG, QD
  8. AMIODARONE HCL [Concomitant]
     Dosage: 200 MG, QD
  9. SIMVASTATIN [Concomitant]
     Dosage: 80 MG, UNK
  10. WARFARIN SODIUM [Concomitant]
  11. FEXOFENADINE [Concomitant]
     Dosage: 180 MG, UNK
  12. FOLIC ACID [Concomitant]
     Dosage: 400 UG, QD
  13. FUROSEMIDE [Concomitant]
     Dosage: 40 MG, QD
  14. CHRONULAC [Concomitant]
     Dosage: UNK UNK, PRN
  15. FORTEO [Suspect]
     Dosage: 20 UG, QD
     Dates: end: 20120323
  16. FORTEO [Suspect]
     Dosage: 20 UG, QD
     Dates: start: 20110601, end: 20120601
  17. AMBIEN [Concomitant]
     Dosage: 10 MG, QD
  18. BETA BLOCKING AGENTS [Concomitant]
  19. SENNA-S                            /01035001/ [Concomitant]
     Dosage: UNK, BID
  20. ASPIRIN [Concomitant]
     Dosage: 81 MG, UNK
  21. POTASSIUM CHLORIDE [Concomitant]
     Dosage: 40 MG, QD
  22. FORTEO [Suspect]
     Indication: OSTEOPOROSIS
     Dosage: 20 UG, QD
     Dates: start: 20110601
  23. FORTEO [Suspect]
     Dosage: 20 UG, QD
  24. FORTEO [Suspect]
     Dosage: 20 UG, QD
  25. CALCIUM CITRATE [Concomitant]
     Dosage: 1000 MG, BID
  26. FUROSEMIDE [Concomitant]
     Indication: OEDEMA PERIPHERAL
     Dosage: 40 MG, PRN
  27. CALCIUM CITRATE [Concomitant]
     Dosage: 1000 MG, QD
  28. FORTEO [Suspect]
     Dosage: 20 UG, QD
  29. FORTEO [Suspect]
     Dosage: 20 UG, QD
  30. MIRTAZAPINE [Concomitant]
     Indication: DEPRESSION
     Dosage: 30 MG, QD
  31. TYLENOL                                 /SCH/ [Concomitant]
     Indication: PAIN
     Dosage: 500 MG, PRN
  32. RECLAST [Concomitant]
  33. VITAMIN D [Concomitant]
     Dosage: 1000 MG, BID

REACTIONS (15)
  - BACK PAIN [None]
  - FATIGUE [None]
  - DEPRESSION [None]
  - ARTHRALGIA [None]
  - ASTHENIA [None]
  - HEART VALVE CALCIFICATION [None]
  - SPINAL FRACTURE [None]
  - NERVOUSNESS [None]
  - BLOOD CALCIUM INCREASED [None]
  - ENTEROCOCCAL INFECTION [None]
  - BLOOD PRESSURE INCREASED [None]
  - AORTIC VALVE DISEASE [None]
  - NEGATIVE THOUGHTS [None]
  - SUICIDAL IDEATION [None]
  - STREPTOCOCCAL INFECTION [None]
